FAERS Safety Report 7318993-1 (Version None)
Quarter: 2011Q1

REPORT INFORMATION
  Report Type: 
  Country: None (occurrence: None)
  Receive Date: 20110228
  Receipt Date: 20110214
  Transmission Date: 20110831
  Serious: Yes (Hospitalization)
  Sender: FDA-Public Use
  Company Number: US-MYLANLABS-2011S1003335

PATIENT
  Age: 46 Year
  Sex: Female

DRUGS (8)
  1. AZATHIOPRINE [Suspect]
     Indication: IMMUNOSUPPRESSION
     Route: 065
  2. COTRIM [Concomitant]
     Route: 065
  3. FAMOTIDINE [Concomitant]
     Route: 065
  4. ASPIRIN [Concomitant]
     Route: 065
  5. GABAPENTIN [Concomitant]
     Route: 065
  6. ZOLPIDEM [Concomitant]
     Route: 065
  7. TACROLIMUS [Concomitant]
     Indication: IMMUNOSUPPRESSION
     Route: 065
  8. FLUCONAZOLE [Concomitant]
     Route: 065

REACTIONS (1)
  - TUBULOINTERSTITIAL NEPHRITIS [None]
